FAERS Safety Report 8290009-2 (Version None)
Quarter: 2012Q2

REPORT INFORMATION
  Report Type: 
  Country: None (occurrence: None)
  Receive Date: 20120417
  Receipt Date: 20120410
  Transmission Date: 20120825
  Serious: Yes (Death)
  Sender: FDA-Public Use
  Company Number: US-CELGENEUS-163-21880-12032393

PATIENT
  Sex: Male

DRUGS (13)
  1. FOLIC ACID [Concomitant]
     Dosage: 20 MILLIGRAM
     Route: 048
  2. GEMFIBROZIL [Concomitant]
     Dosage: 600 MILLIGRAM
     Route: 048
  3. IRON [Concomitant]
     Dosage: 18 MILLIGRAM
     Route: 048
  4. ASPIRIN [Concomitant]
     Dosage: 81 MILLIGRAM
     Route: 048
  5. COZAAR [Concomitant]
     Dosage: 100 MILLIGRAM
     Route: 048
  6. REVLIMID [Suspect]
     Dosage: 10 MILLIGRAM
     Route: 048
     Dates: start: 20120228, end: 20120314
  7. PRILOSEC [Concomitant]
     Dosage: 10 MILLIGRAM
     Route: 048
  8. VITAMIN D [Concomitant]
     Dosage: 1000 UNITS
     Route: 048
  9. VITAMIN B-12 [Concomitant]
     Dosage: 1000 CR
     Route: 048
  10. ASCORBIC ACID [Concomitant]
     Dosage: 500 MILLIGRAM
     Route: 048
  11. HYDROCODONE BITARTRATE AND ACETAMINOPHEN [Concomitant]
     Dosage: 5-325MG
     Route: 048
  12. MULTI-VITAMINS [Concomitant]
     Route: 048
  13. ALLOPURINOL [Concomitant]
     Dosage: 100 MILLIGRAM
     Route: 048

REACTIONS (1)
  - SEPSIS [None]
